FAERS Safety Report 21247876 (Version 1)
Quarter: 2022Q3

REPORT INFORMATION
  Report Type: Spontaneous
  Country: US (occurrence: None)
  Receive Date: 20220823
  Receipt Date: 20220823
  Transmission Date: 20221027
  Serious: Yes (Other)
  Sender: FDA-Public Use
  Company Number: None

PATIENT
  Sex: Female
  Weight: 63 kg

DRUGS (3)
  1. DUPIXENT [Suspect]
     Active Substance: DUPILUMAB
     Indication: Dermatitis atopic
     Dosage: OTHER FREQUENCY : EVERY 2 WEEKS;?
     Route: 058
     Dates: start: 20180419, end: 20210403
  2. levothyroxine 100 mcg once daily [Concomitant]
  3. valacyclovir 500 mg as needed [Concomitant]

REACTIONS (3)
  - Rash [None]
  - Erythema [None]
  - Coronavirus infection [None]
